FAERS Safety Report 4653219-9 (Version None)
Quarter: 2005Q2

REPORT INFORMATION
  Report Type: 
  Country: None (occurrence: None)
  Receive Date: 20050503
  Receipt Date: 20040526
  Transmission Date: 20051028
  Serious: Yes (Hospitalization)
  Sender: FDA-Public Use
  Company Number: F01200401226

PATIENT
  Age: 65 Year
  Sex: Male

DRUGS (7)
  1. OXALIPLATIN - SOLUTION - 260 MG [Suspect]
     Indication: COLORECTAL CANCER METASTATIC
     Dosage: 260 MG Q3W INTRAVENOUS NOS
     Route: 042
  2. CAPECITABINE - TABLET - 2000 MG [Suspect]
     Dosage: 2000 MG TWICE A DAY FROM DAY 1 TO DAY 15, Q3W ORAL
     Route: 048
  3. LOSEC (OMEPRAZOLE) [Concomitant]
  4. AVALIDE [Concomitant]
  5. JUICE PLUS (NUTRITIONAL SUPPLEMENT) [Concomitant]
  6. ESSIAC TEA (ARCTIUM/RHUBARB/RUMEX ACETOSELLA/SLIPPERY ELM) [Concomitant]
  7. COUMADIN [Concomitant]

REACTIONS (3)
  - ENTERITIS [None]
  - ILEUS [None]
  - SMALL INTESTINAL OBSTRUCTION [None]
